FAERS Safety Report 4878411-X (Version None)
Quarter: 2005Q4

REPORT INFORMATION
  Report Type: 
  Country: None (occurrence: None)
  Receive Date: 20051212
  Receipt Date: 20051005
  Transmission Date: 20060501
  Serious: Yes (Other)
  Sender: FDA-Public Use
  Company Number: SUSI-2005-00747

PATIENT
  Sex: Male

DRUGS (1)
  1. ADDERALL XR(DEXTROAMPHETAMINE SULFATE, DEXTROAMPHETAMINE, SACCHARATE, [Suspect]
     Dosage: 20  MG
     Dates: start: 20030101

REACTIONS (1)
  - PSYCHOTIC DISORDER [None]
